FAERS Safety Report 6106552-8 (Version None)
Quarter: 2009Q1

REPORT INFORMATION
  Report Type: 
  Country: None (occurrence: None)
  Receive Date: 20090306
  Receipt Date: 20090226
  Transmission Date: 20090719
  Serious: Yes (Other)
  Sender: FDA-Public Use
  Company Number: DE-MERCK-0806DEU00007

PATIENT
  Age: 36 Year
  Sex: Female

DRUGS (3)
  1. JANUVIA [Suspect]
     Indication: TYPE 2 DIABETES MELLITUS
     Route: 048
     Dates: start: 20080505, end: 20080516
  2. METFORMIN [Concomitant]
     Route: 065
     Dates: start: 20070801, end: 20080516
  3. VALSARTAN [Concomitant]
     Route: 048
     Dates: start: 20060101, end: 20080516

REACTIONS (2)
  - ADVERSE EVENT [None]
  - DRUG EXPOSURE DURING PREGNANCY [None]
